FAERS Safety Report 23259631 (Version 1)
Quarter: 2023Q4

REPORT INFORMATION
  Report Type: Spontaneous
  Country: US (occurrence: US)
  Receive Date: 20231204
  Receipt Date: 20231204
  Transmission Date: 20240110
  Serious: Yes (Death, Hospitalization, Other)
  Sender: FDA-Public Use
  Company Number: US-AstraZeneca-CH-00521199A

PATIENT
  Age: 29 Year
  Sex: Female

DRUGS (1)
  1. SOLIRIS [Suspect]
     Active Substance: ECULIZUMAB
     Indication: Neuromyelitis optica spectrum disorder
     Dosage: UNK
     Route: 042
     Dates: start: 202309

REACTIONS (5)
  - Death [Fatal]
  - White matter lesion [Unknown]
  - Coma [Unknown]
  - Tachycardia [Unknown]
  - Headache [Unknown]

NARRATIVE: CASE EVENT DATE: 20231121
